FAERS Safety Report 10917619 (Version 1)
Quarter: 2015Q1

REPORT INFORMATION
  Report Type: Spontaneous
  Country: US (occurrence: None)
  Receive Date: 20150312
  Receipt Date: 20150312
  Transmission Date: 20150721
  Serious: No
  Sender: FDA-Public Use
  Company Number: None

PATIENT
  Age: 71 Year
  Sex: Female
  Weight: 64.41 kg

DRUGS (1)
  1. BRINTELLIX [Suspect]
     Active Substance: VORTIOXETINE HYDROBROMIDE
     Indication: DEPRESSION
     Dosage: 30 PILLS
     Route: 048
     Dates: start: 20150126, end: 20150205

REACTIONS (5)
  - Blood pressure abnormal [None]
  - Palpitations [None]
  - Feeling of body temperature change [None]
  - Aggression [None]
  - Insomnia [None]
